FAERS Safety Report 15964576 (Version 2)
Quarter: 2019Q1

REPORT INFORMATION
  Report Type: Spontaneous
  Country: AU (occurrence: AU)
  Receive Date: 20190215
  Receipt Date: 20190220
  Transmission Date: 20190417
  Serious: Yes (Death)
  Sender: FDA-Public Use
  Company Number: AU-ROCHE-2219277

PATIENT
  Sex: Female
  Weight: 84 kg

DRUGS (5)
  1. HERCEPTIN [Suspect]
     Active Substance: TRASTUZUMAB
     Indication: APPENDIX CANCER
     Dosage: CYCLE ONE, LOADING DOSE
     Route: 042
  2. HERCEPTIN [Suspect]
     Active Substance: TRASTUZUMAB
     Dosage: CYCLE 2, MAINTAINANCE DOSE
     Route: 042
  3. IRINOTECAN [Concomitant]
     Active Substance: IRINOTECAN
     Indication: APPENDIX CANCER
  4. FLUOROURACIL. [Concomitant]
     Active Substance: FLUOROURACIL
     Indication: APPENDIX CANCER
  5. FOLINIC ACID [Concomitant]
     Active Substance: LEUCOVORIN
     Indication: APPENDIX CANCER

REACTIONS (3)
  - Intentional product use issue [Unknown]
  - Death [Fatal]
  - Off label use [Unknown]
